FAERS Safety Report 6848196-6 (Version None)
Quarter: 2010Q3

REPORT INFORMATION
  Report Type: 
  Country: None (occurrence: None)
  Receive Date: 20100716
  Receipt Date: 20100713
  Transmission Date: 20110219
  Serious: Yes (Hospitalization)
  Sender: FDA-Public Use
  Company Number: B0664377A

PATIENT
  Sex: Male

DRUGS (8)
  1. AUGMENTIN '125' [Suspect]
     Indication: BRONCHITIS
     Route: 042
     Dates: start: 20100530, end: 20100602
  2. INDAPAMIDE [Concomitant]
     Dosage: 1.5MG PER DAY
     Route: 065
  3. KARDEGIC [Concomitant]
     Dosage: 160MG UNKNOWN
     Route: 065
  4. PLAVIX [Concomitant]
     Dosage: 75MG PER DAY
     Route: 048
  5. LOXEN LP [Concomitant]
     Dosage: 100MG PER DAY
     Route: 048
  6. VASTEN [Concomitant]
     Dosage: 20MG PER DAY
     Route: 048
  7. ISOPTIN [Concomitant]
     Dosage: 240MG PER DAY
     Route: 048
  8. ALLOPURINOL [Concomitant]
     Dosage: 1UNIT PER DAY
     Route: 065

REACTIONS (4)
  - HEPATITIS CHOLESTATIC [None]
  - MALABSORPTION [None]
  - PROTHROMBIN TIME RATIO DECREASED [None]
  - RENAL FAILURE ACUTE [None]
